FAERS Safety Report 4358767-7 (Version None)
Quarter: 2004Q2

REPORT INFORMATION
  Report Type: 
  Country: None (occurrence: None)
  Receive Date: 20040511
  Receipt Date: 20040503
  Transmission Date: 20050107
  Serious: Yes (Death)
  Sender: FDA-Public Use
  Company Number: 2004209634US

PATIENT
  Age: 16 Year
  Sex: Male
  Weight: 72.1 kg

DRUGS (2)
  1. XANAX [Suspect]
  2. METHADONE (METHADONE) [Suspect]

REACTIONS (5)
  - ACCIDENT [None]
  - BRONCHOPNEUMONIA [None]
  - DRUG TOXICITY [None]
  - PULMONARY HAEMORRHAGE [None]
  - PULMONARY OEDEMA [None]
